FAERS Safety Report 5945172-2 (Version None)
Quarter: 2008Q4

REPORT INFORMATION
  Report Type: 
  Country: None (occurrence: None)
  Receive Date: 20081107
  Receipt Date: 20081103
  Transmission Date: 20090506
  Serious: Yes (Other)
  Sender: FDA-Public Use
  Company Number: A0755476A

PATIENT
  Age: 85 Year
  Sex: Male

DRUGS (2)
  1. PAXIL [Suspect]
     Indication: DEPRESSION
     Route: 048
  2. XANAX [Suspect]
     Indication: DEPRESSION
     Route: 048

REACTIONS (13)
  - DELIRIUM [None]
  - DYSPNOEA [None]
  - HAEMORRHAGE [None]
  - HOMICIDE [None]
  - HYPOXIA [None]
  - INJURY [None]
  - MALAISE [None]
  - MENTAL DISORDER [None]
  - NAUSEA [None]
  - PNEUMONIA [None]
  - SLEEP APNOEA SYNDROME [None]
  - SUICIDE ATTEMPT [None]
  - VOCAL CORD DISORDER [None]
